FAERS Safety Report 5201568-8 (Version None)
Quarter: 2006Q4

REPORT INFORMATION
  Report Type: 
  Country: None (occurrence: None)
  Receive Date: 20061006
  Receipt Date: 20060420
  Transmission Date: 20070319
  Serious: Yes (Other)
  Sender: FDA-Public Use
  Company Number: PHEH2006US05243

PATIENT
  Sex: Female

DRUGS (10)
  1. ESTALIS COMBIPATCH(ESTRADIOL, NORETHISTERONE ACETATE) TRANS-THERAPEUTI [Suspect]
     Indication: HORMONE REPLACEMENT THERAPY
     Dosage: TRANSDERMAL
     Route: 062
     Dates: start: 19910101
  2. ESTRADERM [Suspect]
     Indication: DRUG USE FOR UNKNOWN INDICATION
  3. VIVELLE [Suspect]
     Indication: DRUG USE FOR UNKNOWN INDICATION
  4. AYGESTIN [Suspect]
     Indication: DRUG USE FOR UNKNOWN INDICATION
  5. ESTRATEST [Suspect]
     Indication: DRUG USE FOR UNKNOWN INDICATION
  6. OGEN [Suspect]
     Indication: DRUG USE FOR UNKNOWN INDICATION
  7. PREMARIN [Suspect]
     Indication: DRUG USE FOR UNKNOWN INDICATION
  8. PROVERA [Suspect]
     Indication: DRUG USE FOR UNKNOWN INDICATION
  9. PREMPRO [Suspect]
     Indication: DRUG USE FOR UNKNOWN INDICATION
  10. ESTROGENS ESTERIFIED (ESTROGENS ESTERIFIED) [Suspect]
     Indication: DRUG USE FOR UNKNOWN INDICATION

REACTIONS (3)
  - BREAST CANCER [None]
  - INJURY [None]
  - MASTECTOMY [None]
